FAERS Safety Report 6015963-0 (Version None)
Quarter: 2008Q4

REPORT INFORMATION
  Report Type: 
  Country: None (occurrence: None)
  Receive Date: 20081218
  Receipt Date: 20081216
  Transmission Date: 20090506
  Serious: Yes (Hospitalization)
  Sender: FDA-Public Use
  Company Number: GXKR2008DE11875

PATIENT
  Age: 72 Year
  Sex: Female
  Weight: 90 kg

DRUGS (5)
  1. DICLOFENAC SODIUM [Suspect]
     Indication: MUSCULOSKELETAL DISCOMFORT
     Dosage: ORAL
     Route: 048
     Dates: start: 20081128, end: 20081206
  2. METFORMIN HCL [Suspect]
     Indication: DIABETES MELLITUS
     Dosage: 2000 MG, ORAL
     Route: 048
     Dates: start: 20081206, end: 20081206
  3. RAMIPRIL (RAMIPRIL) 5 MG [Suspect]
     Indication: HYPERTENSION
  4. GLYBURIDE [Concomitant]
  5. NEXIUM [Concomitant]

REACTIONS (3)
  - DIALYSIS [None]
  - LACTIC ACIDOSIS [None]
  - LOSS OF CONSCIOUSNESS [None]
